FAERS Safety Report 9176829 (Version 1)
Quarter: 2013Q1

REPORT INFORMATION
  Report Type: Spontaneous
  Country: FR (occurrence: FR)
  Receive Date: 20130321
  Receipt Date: 20130321
  Transmission Date: 20140127
  Serious: Yes (Other)
  Sender: FDA-Public Use
  Company Number: FR-PFIZER INC-2013088546

PATIENT
  Sex: 0

DRUGS (1)
  1. LYRICA [Suspect]
     Dosage: 200 MG, 2X/DAY

REACTIONS (1)
  - Drug withdrawal convulsions [Unknown]
